FAERS Safety Report 20217613 (Version 1)
Quarter: 2021Q4

REPORT INFORMATION
  Report Type: Report from Study
  Country: US (occurrence: US)
  Receive Date: 20211222
  Receipt Date: 20211222
  Transmission Date: 20220303
  Serious: Yes (Other)
  Sender: FDA-Public Use
  Company Number: US-ABBVIE-21K-163-4205952-00

PATIENT
  Sex: Female

DRUGS (2)
  1. RINVOQ [Suspect]
     Active Substance: UPADACITINIB
     Indication: Rheumatoid arthritis
     Route: 048
  2. MODERNA COVID-19 VACCINE [Concomitant]
     Active Substance: ELASOMERAN
     Indication: COVID-19 immunisation
     Route: 030

REACTIONS (7)
  - Spinal column injury [Not Recovered/Not Resolved]
  - Osteoporosis [Unknown]
  - Urticaria [Recovered/Resolved]
  - COVID-19 [Unknown]
  - Osteopenia [Unknown]
  - Hand deformity [Unknown]
  - Disability [Not Recovered/Not Resolved]
